FAERS Safety Report 6634481-X (Version None)
Quarter: 2010Q1

REPORT INFORMATION
  Report Type: 
  Country: None (occurrence: None)
  Receive Date: 20100315
  Receipt Date: 20100310
  Transmission Date: 20100710
  Serious: Yes (Other)
  Sender: FDA-Public Use
  Company Number: B0633093A

PATIENT
  Age: 56 Year
  Sex: Female
  Weight: 58 kg

DRUGS (15)
  1. NICORETTE [Suspect]
     Indication: DRUG USE FOR UNKNOWN INDICATION
     Dosage: 25MG PER DAY
     Route: 062
     Dates: start: 20100105, end: 20100119
  2. RAMIPRIL [Concomitant]
     Indication: ACUTE MYOCARDIAL INFARCTION
     Route: 048
  3. ATORVASTATIN CALCIUM [Concomitant]
     Route: 048
  4. ASPIRIN [Concomitant]
     Indication: ACUTE MYOCARDIAL INFARCTION
     Route: 048
  5. ISOSORBIDE [Concomitant]
     Indication: ACUTE MYOCARDIAL INFARCTION
     Route: 048
  6. PREGABALIN [Concomitant]
     Route: 048
  7. CAPSAICIN [Concomitant]
     Route: 061
  8. CLOPIDOGREL [Concomitant]
     Indication: STENT PLACEMENT
     Route: 048
  9. LANSOPRAZOLE [Concomitant]
     Indication: DYSPEPSIA
     Route: 048
  10. MERBENTYL [Concomitant]
     Indication: IRRITABLE BOWEL SYNDROME
     Route: 048
  11. GLYCERYL TRINITRATE [Concomitant]
     Indication: ACUTE MYOCARDIAL INFARCTION
     Route: 055
  12. BISOPROLOL [Concomitant]
     Indication: ACUTE MYOCARDIAL INFARCTION
     Route: 048
  13. CITALOPRAM HYDROBROMIDE [Concomitant]
     Indication: DEPRESSION
     Route: 048
  14. REMEDEINE [Concomitant]
     Route: 048
  15. SOLIFENACIN SUCCINATE [Concomitant]
     Route: 048

REACTIONS (6)
  - APPLICATION SITE ERYTHEMA [None]
  - APPLICATION SITE PAIN [None]
  - APPLICATION SITE REACTION [None]
  - APPLICATION SITE VESICLES [None]
  - PRURITUS [None]
  - RASH [None]
